FAERS Safety Report 11989513 (Version 17)
Quarter: 2016Q4

REPORT INFORMATION
  Report Type: Report from Study
  Country: CA (occurrence: CA)
  Receive Date: 20160202
  Receipt Date: 20161104
  Transmission Date: 20170206
  Serious: Yes (Hospitalization, Other)
  Sender: FDA-Public Use
  Company Number: PHHY2014CA030817

PATIENT
  Age: 60 Year
  Sex: Male
  Weight: 49 kg

DRUGS (4)
  1. XARELTO [Concomitant]
     Active Substance: RIVAROXABAN
     Indication: PRODUCT USED FOR UNKNOWN INDICATION
     Route: 065
  2. SANDOSTATIN LAR DEPOT [Suspect]
     Active Substance: OCTREOTIDE ACETATE
     Indication: CARCINOID TUMOUR
     Dosage: 30 MG, BIW (EVERY TWO WEEKS)
     Route: 030
     Dates: start: 201008, end: 20151218
  3. SANDOSTATIN LAR DEPOT [Suspect]
     Active Substance: OCTREOTIDE ACETATE
     Dosage: 30 MG, BIW (EVERY TWO WEEKS)
     Route: 030
     Dates: end: 20161022
  4. SANDOSTATIN LAR DEPOT [Suspect]
     Active Substance: OCTREOTIDE ACETATE
     Dosage: 30 MG, QMO (ONCE EVERY 4 WEEKS)
     Route: 030

REACTIONS (48)
  - Blood pressure decreased [Unknown]
  - Weight decreased [Recovering/Resolving]
  - Dry skin [Not Recovered/Not Resolved]
  - Obstructive airways disorder [Unknown]
  - Blood pressure systolic decreased [Unknown]
  - Prostatic disorder [Not Recovered/Not Resolved]
  - Peripheral swelling [Recovered/Resolved]
  - Secretion discharge [Unknown]
  - Heart rate irregular [Unknown]
  - Dyspnoea [Recovered/Resolved]
  - Abdominal pain upper [Unknown]
  - Dyspnoea [Unknown]
  - Dizziness [Unknown]
  - Hypotension [Unknown]
  - Back injury [Recovering/Resolving]
  - Increased viscosity of upper respiratory secretion [Unknown]
  - Electrolyte imbalance [Unknown]
  - Confusional state [Unknown]
  - Protein deficiency [Unknown]
  - Vomiting [Recovering/Resolving]
  - Jaundice [Unknown]
  - Asthenia [Unknown]
  - Lethargy [Unknown]
  - Deep vein thrombosis [Unknown]
  - Cyanosis [Unknown]
  - Feeding disorder [Unknown]
  - Diarrhoea [Recovering/Resolving]
  - Fatigue [Unknown]
  - Skin disorder [Unknown]
  - Decreased appetite [Unknown]
  - Back pain [Recovering/Resolving]
  - Breath sounds abnormal [Unknown]
  - Gravitational oedema [Unknown]
  - Frequent bowel movements [Unknown]
  - Peripheral swelling [Unknown]
  - Restlessness [Unknown]
  - General physical health deterioration [Unknown]
  - Contusion [Unknown]
  - Productive cough [Unknown]
  - Back pain [Unknown]
  - Fistula discharge [Unknown]
  - Feeling cold [Unknown]
  - Malaise [Recovering/Resolving]
  - Dysuria [Not Recovered/Not Resolved]
  - Blue toe syndrome [Unknown]
  - Dyspepsia [Unknown]
  - Inappropriate schedule of drug administration [Unknown]
  - Protein total decreased [Unknown]

NARRATIVE: CASE EVENT DATE: 20100801
